FAERS Safety Report 23210713 (Version 2)
Quarter: 2024Q1

REPORT INFORMATION
  Report Type: Spontaneous
  Country: DK (occurrence: DK)
  Receive Date: 20231121
  Receipt Date: 20240102
  Transmission Date: 20240410
  Serious: Yes (Other)
  Sender: FDA-Public Use
  Company Number: DK-PFIZER INC-PV202300187719

PATIENT
  Age: 8 Decade
  Sex: Female

DRUGS (1)
  1. ESTRING [Suspect]
     Active Substance: ESTRADIOL
     Dosage: 1 RING TO BE CHANGED EVERY 3RD MONTH
     Route: 067

REACTIONS (2)
  - Device use issue [Recovered/Resolved]
  - Vulvovaginal discomfort [Recovered/Resolved]
